FAERS Safety Report 5050899-3 (Version None)
Quarter: 2006Q3

REPORT INFORMATION
  Report Type: 
  Country: None (occurrence: None)
  Receive Date: 20060710
  Receipt Date: 20060630
  Transmission Date: 20061208
  Serious: Yes (Other)
  Sender: FDA-Public Use
  Company Number: 2006-DE-03347GD

PATIENT
  Age: 7 Year
  Sex: Female
  Weight: 44 kg

DRUGS (6)
  1. MORPHINE [Suspect]
     Indication: POSTOPERATIVE ANALGESIA
     Dosage: 2.5 MG (SEE TEXT, SINGLE CAUDAL INJECTION OF 2.5 MG MORPHINE/100 ML SALINE OVER ABOUT 20 S), ED
     Route: 008
  2. MIDAZOLAM HCL [Concomitant]
  3. SEVOFLURANE [Concomitant]
  4. NITROUS OXIDE W/ OXYGEN [Concomitant]
  5. OXYGEN (OXYGEN) [Concomitant]
  6. REMIFENTANIL (REMIFENTANIL) [Concomitant]

REACTIONS (4)
  - ELECTROMYOGRAM ABNORMAL [None]
  - INVESTIGATION ABNORMAL [None]
  - MOTOR DYSFUNCTION [None]
  - NERVE ROOT COMPRESSION [None]
